FAERS Safety Report 6713237-3 (Version None)
Quarter: 2010Q2

REPORT INFORMATION
  Report Type: 
  Country: None (occurrence: None)
  Receive Date: 20100503
  Receipt Date: 20100419
  Transmission Date: 20101027
  Serious: Yes (Hospitalization)
  Sender: FDA-Public Use
  Company Number: RU-1181365

PATIENT
  Age: 45 Year
  Sex: Female

DRUGS (1)
  1. MAXITROL [Suspect]
     Indication: EYE INFECTION
     Dosage: 2 GTT QID OU OPHTHALMIC
     Route: 047
     Dates: start: 20100313, end: 20100324

REACTIONS (2)
  - ULCERATIVE KERATITIS [None]
  - VISUAL ACUITY REDUCED [None]
